FAERS Safety Report 6711445-9 (Version None)
Quarter: 2010Q2

REPORT INFORMATION
  Report Type: 
  Country: None (occurrence: None)
  Receive Date: 20100505
  Receipt Date: 20100426
  Transmission Date: 20101027
  Serious: Yes (Other)
  Sender: FDA-Public Use
  Company Number: US-PFIZER INC-2010053447

PATIENT
  Sex: Female
  Weight: 50.8 kg

DRUGS (3)
  1. PROVERA [Suspect]
     Dosage: UNK
  2. MEDROXYPROGESTERONE ACETATE [Suspect]
     Dosage: UNK
  3. PREMARIN [Suspect]
     Dosage: UNK

REACTIONS (4)
  - BLINDNESS [None]
  - HAEMORRHAGE URINARY TRACT [None]
  - KNEE ARTHROPLASTY [None]
  - TOOTH DISORDER [None]
